FAERS Safety Report 9251705 (Version 1)
Quarter: 2013Q2

REPORT INFORMATION
  Report Type: Spontaneous
  Country: BR (occurrence: BR)
  Receive Date: 20130424
  Receipt Date: 20130424
  Transmission Date: 20140414
  Serious: Yes (Other)
  Sender: FDA-Public Use
  Company Number: BR-BRISTOL-MYERS SQUIBB COMPANY-18802595

PATIENT
  Sex: Female

DRUGS (1)
  1. APROVEL TABS 300 MG [Suspect]

REACTIONS (1)
  - Neoplasm malignant [Unknown]
